FAERS Safety Report 21930464 (Version 2)
Quarter: 2023Q1

REPORT INFORMATION
  Report Type: Report from Study
  Country: CA (occurrence: CA)
  Receive Date: 20230131
  Receipt Date: 20230222
  Transmission Date: 20230418
  Serious: Yes (Hospitalization)
  Sender: FDA-Public Use
  Company Number: CA-TAKEDA-CA202031480

PATIENT
  Age: 12 Year
  Sex: Male
  Weight: 55 kg

DRUGS (6)
  1. IDURSULFASE [Suspect]
     Active Substance: IDURSULFASE
     Indication: Mucopolysaccharidosis II
     Dosage: 23.6 MILLIGRAM, 1/WEEK
     Route: 065
     Dates: start: 20091201
  2. IDURSULFASE [Suspect]
     Active Substance: IDURSULFASE
     Dosage: 23.5 MILLIGRAM, 1/WEEK
     Route: 065
     Dates: start: 20091201
  3. IDURSULFASE [Suspect]
     Active Substance: IDURSULFASE
     Dosage: 5 DOSAGE FORM, 1/WEEK
     Route: 050
     Dates: start: 20091201
  4. IDURSULFASE [Suspect]
     Active Substance: IDURSULFASE
     Dosage: 29 MILLIGRAM, 1/WEEK
     Route: 050
     Dates: start: 20091201
  5. ASPIRIN [Concomitant]
     Active Substance: ASPIRIN
     Dosage: UNK
     Route: 065
  6. WARFARIN [Concomitant]
     Active Substance: WARFARIN
     Dosage: UNK
     Route: 065

REACTIONS (5)
  - Blood culture positive [Unknown]
  - Pyrexia [Unknown]
  - Upper respiratory tract infection [Recovering/Resolving]
  - Blood pressure increased [Unknown]
  - Weight increased [Unknown]

NARRATIVE: CASE EVENT DATE: 20220717
